FAERS Safety Report 7086207-6 (Version None)
Quarter: 2010Q4

REPORT INFORMATION
  Report Type: 
  Country: None (occurrence: None)
  Receive Date: 20101105
  Receipt Date: 20101025
  Transmission Date: 20110411
  Serious: No
  Sender: FDA-Public Use
  Company Number: FR-ELI_LILLY_AND_COMPANY-FR201010005826

PATIENT
  Sex: Female

DRUGS (1)
  1. ZYPREXA [Suspect]
     Dosage: UNK, DAILY (1/D)
     Route: 048

REACTIONS (12)
  - ABDOMINAL PAIN UPPER [None]
  - BLOOD GLUCOSE INCREASED [None]
  - BLOOD PRESSURE INCREASED [None]
  - CONSTIPATION [None]
  - DRY MOUTH [None]
  - FATIGUE [None]
  - HAEMORRHOIDS [None]
  - HUNGER [None]
  - LIPASE INCREASED [None]
  - SOMNOLENCE [None]
  - VENOUS THROMBOSIS LIMB [None]
  - WEIGHT INCREASED [None]
